FAERS Safety Report 14621045 (Version 1)
Quarter: 2018Q1

REPORT INFORMATION
  Report Type: Report from Study
  Country: DE (occurrence: DE)
  Receive Date: 20180309
  Receipt Date: 20180309
  Transmission Date: 20180509
  Serious: Yes (Other)
  Sender: FDA-Public Use
  Company Number: DE-BAXTER-2018BAX008185

PATIENT
  Sex: Female

DRUGS (7)
  1. ENDOXAN 1G [Suspect]
     Active Substance: CYCLOPHOSPHAMIDE
     Indication: AUTOIMMUNE DERMATITIS
  2. ENDOXAN [Suspect]
     Active Substance: CYCLOPHOSPHAMIDE
     Indication: AUTOIMMUNE DERMATITIS
  3. ENDOXAN 1G [Suspect]
     Active Substance: CYCLOPHOSPHAMIDE
     Indication: DERMATITIS BULLOUS
     Dosage: DAY 1, REPEATED EVERY 2-4 WEEKS, LATER UP TO 10 WEEKS
     Route: 041
     Dates: start: 198911
  4. ENDOXAN [Suspect]
     Active Substance: CYCLOPHOSPHAMIDE
     Indication: DERMATITIS BULLOUS
     Route: 048
  5. UROMITEXAN 400 MG [Suspect]
     Active Substance: MESNA
     Indication: PROPHYLAXIS
     Dosage: 3 X 100 MG
     Route: 042
     Dates: start: 198911, end: 199101
  6. FORTECORTIN [Suspect]
     Active Substance: DEXAMETHASONE
     Indication: DERMATITIS BULLOUS
     Dosage: DAY 1-3, REPEATED EVERY 2-4 WEEKS, LATER UP TO 10 WEEKS
     Route: 042
     Dates: start: 198911
  7. FORTECORTIN [Suspect]
     Active Substance: DEXAMETHASONE
     Indication: AUTOIMMUNE DERMATITIS

REACTIONS (2)
  - Exfoliative rash [Unknown]
  - Herpes zoster [Unknown]
